FAERS Safety Report 13142301 (Version 2)
Quarter: 2018Q1

REPORT INFORMATION
  Report Type: Report from Study
  Country: US (occurrence: US)
  Receive Date: 20170123
  Receipt Date: 20180228
  Transmission Date: 20180508
  Serious: Yes (Hospitalization)
  Sender: FDA-Public Use
  Company Number: US-ACTELION-A-US2017-148832

PATIENT
  Age: 84 Year
  Sex: Female

DRUGS (10)
  1. ATORVASTATIN [Concomitant]
     Active Substance: ATORVASTATIN
  2. LIPITOR [Concomitant]
     Active Substance: ATORVASTATIN CALCIUM
  3. ULTRAM [Concomitant]
     Active Substance: TRAMADOL HYDROCHLORIDE
  4. COLACE [Concomitant]
     Active Substance: DOCUSATE SODIUM
  5. SPIRONOLACTONE. [Concomitant]
     Active Substance: SPIRONOLACTONE
  6. TRACLEER [Suspect]
     Active Substance: BOSENTAN
     Indication: PULMONARY ARTERIAL HYPERTENSION
     Dosage: 125 MG, BID
     Route: 048
     Dates: start: 201502
  7. LEXAPRO [Concomitant]
     Active Substance: ESCITALOPRAM OXALATE
  8. WARFARIN [Concomitant]
     Active Substance: WARFARIN
  9. TRACLEER [Suspect]
     Active Substance: BOSENTAN
     Dosage: 125 MG, UNK
     Route: 048
     Dates: start: 20140114
  10. BUMEX [Concomitant]
     Active Substance: BUMETANIDE

REACTIONS (2)
  - Pneumonitis [Recovered/Resolved]
  - Pneumonia [Unknown]

NARRATIVE: CASE EVENT DATE: 20180206
